FAERS Safety Report 14302441 (Version 1)
Quarter: 2017Q4

REPORT INFORMATION
  Report Type: Spontaneous
  Country: US (occurrence: US)
  Receive Date: 20171218
  Receipt Date: 20171218
  Transmission Date: 20180321
  Serious: Yes (Other)
  Sender: FDA-Public Use
  Company Number: None

PATIENT
  Age: 72 Year
  Sex: Female

DRUGS (1)
  1. FORTEO [Suspect]
     Active Substance: TERIPARATIDE
     Indication: OSTEOPOROSIS
     Route: 058
     Dates: start: 20170830, end: 20171205

REACTIONS (6)
  - Palpitations [None]
  - Hypertension [None]
  - Headache [None]
  - Cough [None]
  - Heart rate increased [None]
  - Neck pain [None]

NARRATIVE: CASE EVENT DATE: 20171015
